FAERS Safety Report 8003106-3 (Version None)
Quarter: 2011Q4

REPORT INFORMATION
  Report Type: 
  Country: None (occurrence: None)
  Receive Date: 20111222
  Receipt Date: 20111212
  Transmission Date: 20120403
  Serious: Yes (Other)
  Sender: FDA-Public Use
  Company Number: PHHY2011DE78154

PATIENT
  Age: 70 Year
  Sex: Female
  Weight: 62 kg

DRUGS (6)
  1. TRAMADOL HCL [Concomitant]
     Dosage: UNK UKN, UNK
     Route: 048
  2. RASILEZ [Suspect]
     Indication: HYPERTENSION
     Dosage: 1 DF, QD
     Route: 048
     Dates: start: 20110501
  3. NITROGLYCERIN [Concomitant]
     Dosage: UNK UKN, UNK
  4. PANTOPRAZOLE SODIUM [Concomitant]
     Indication: ABDOMINAL PAIN UPPER
     Dosage: 1 DF, QD
     Route: 048
     Dates: start: 20041213
  5. PYOLYSIN OINTMENT [Concomitant]
     Dosage: UNK UKN, UNK
  6. MELPERONE [Concomitant]
     Route: 048

REACTIONS (6)
  - ACNE [None]
  - EYE DISORDER [None]
  - CONSTIPATION [None]
  - RASH PUSTULAR [None]
  - PRURITUS GENERALISED [None]
  - BLISTER [None]
